FAERS Safety Report 7126372-5 (Version None)
Quarter: 2010Q4

REPORT INFORMATION
  Report Type: 
  Country: None (occurrence: None)
  Receive Date: 20101129
  Receipt Date: 20101115
  Transmission Date: 20110411
  Serious: Yes (Hospitalization)
  Sender: FDA-Public Use
  Company Number: CN-ASTRAZENECA-2010SE52061

PATIENT
  Age: 68 Year
  Sex: Male

DRUGS (3)
  1. PLENDIL [Suspect]
     Indication: HYPERTENSION
     Route: 048
     Dates: start: 20101004, end: 20101021
  2. IMIDAPRIL HYDROCHLORIDE [Concomitant]
     Indication: HYPERTENSION
     Route: 048
     Dates: start: 20101004, end: 20101021
  3. GLUCOBAY [Concomitant]
     Indication: HYPERGLYCAEMIA
     Route: 048
     Dates: start: 20101004, end: 20101021

REACTIONS (1)
  - DERMATITIS EXFOLIATIVE [None]
